FAERS Safety Report 17813862 (Version 10)
Quarter: 2023Q2

REPORT INFORMATION
  Report Type: Report from Study
  Country: CA (occurrence: CA)
  Receive Date: 20200521
  Receipt Date: 20230607
  Transmission Date: 20230722
  Serious: Yes (Life-Threatening, Other)
  Sender: FDA-Public Use
  Company Number: PHHY2019CA094311

PATIENT
  Age: 26 Year
  Sex: Female

DRUGS (6)
  1. COSENTYX [Suspect]
     Active Substance: SECUKINUMAB
     Indication: Psoriasis
     Dosage: 300 MG, QMO
     Route: 058
     Dates: start: 20190318, end: 20190816
  2. COSENTYX [Suspect]
     Active Substance: SECUKINUMAB
     Dosage: 300 MG, QMO
     Route: 058
     Dates: start: 20200629, end: 20210715
  3. COSENTYX [Suspect]
     Active Substance: SECUKINUMAB
     Dosage: UNK
     Route: 065
     Dates: start: 202108
  4. COSENTYX [Suspect]
     Active Substance: SECUKINUMAB
     Dosage: 150 MG, QW (TOOK HER FIRST LOADING DOSE ON 27 MAY 2023 BUT THAT SHE ONLY INJECTED 150MG WHEN HER PRE
     Route: 058
     Dates: start: 20230527
  5. ACITRETIN [Concomitant]
     Active Substance: ACITRETIN
     Indication: Product used for unknown indication
     Dosage: UNK
     Route: 065
  6. BETAMETHASONE DIPROPIONATE\CALCIPOTRIENE [Concomitant]
     Active Substance: BETAMETHASONE DIPROPIONATE\CALCIPOTRIENE
     Indication: Product used for unknown indication
     Dosage: UNK
     Route: 065
     Dates: start: 2015

REACTIONS (11)
  - Suicidal ideation [Unknown]
  - Animal bite [Unknown]
  - Infected bite [Unknown]
  - Pain of skin [Unknown]
  - Skin discomfort [Unknown]
  - Pruritus [Unknown]
  - Emotional distress [Unknown]
  - Pain [Not Recovered/Not Resolved]
  - Depression [Unknown]
  - Psoriasis [Unknown]
  - Incorrect dose administered [Unknown]

NARRATIVE: CASE EVENT DATE: 20190415
